FAERS Safety Report 18142719 (Version 1)
Quarter: 2020Q3

REPORT INFORMATION
  Report Type: Spontaneous
  Country: HR (occurrence: HR)
  Receive Date: 20200813
  Receipt Date: 20200813
  Transmission Date: 20201103
  Serious: Yes (Hospitalization, Other)
  Sender: FDA-Public Use
  Company Number: HR-TEVA-2020-HR-1813011

PATIENT
  Age: 8 Year
  Sex: Female
  Weight: 30 kg

DRUGS (1)
  1. PRILEN [Suspect]
     Active Substance: RAMIPRIL
     Dosage: 5 MG
     Route: 048
     Dates: start: 20200614, end: 20200614

REACTIONS (4)
  - Accidental exposure to product by child [Unknown]
  - Bradycardia [Unknown]
  - Accidental poisoning [Unknown]
  - Hypotension [Unknown]

NARRATIVE: CASE EVENT DATE: 20200614
